FAERS Safety Report 9372618 (Version 1)
Quarter: 2013Q2

REPORT INFORMATION
  Report Type: Report from Study
  Country: US (occurrence: US)
  Receive Date: 20130627
  Receipt Date: 20130627
  Transmission Date: 20140414
  Serious: Yes (Death)
  Sender: FDA-Public Use
  Company Number: US-MYLANLABS-2013S1002924

PATIENT
  Age: 38 Year
  Sex: Male
  Weight: 102.97 kg

DRUGS (7)
  1. CLOZAPINE TABLETS [Suspect]
     Indication: SCHIZOPHRENIA
     Route: 048
     Dates: start: 20130103
  2. CLONAZEPAM [Concomitant]
     Route: 048
  3. RISPERDAL [Concomitant]
     Route: 048
  4. RISPERDAL [Concomitant]
     Route: 048
  5. DEPAKOTE [Concomitant]
     Route: 048
  6. SEROQUEL [Concomitant]
     Route: 048
  7. SEROQUEL [Concomitant]
     Route: 048

REACTIONS (1)
  - Death [Fatal]
